FAERS Safety Report 6916806-0 (Version None)
Quarter: 2010Q3

REPORT INFORMATION
  Report Type: 
  Country: None (occurrence: None)
  Receive Date: 20100810
  Receipt Date: 20100802
  Transmission Date: 20110219
  Serious: Yes (Other)
  Sender: FDA-Public Use
  Company Number: US-PFIZER INC-2010073049

PATIENT
  Sex: Female
  Weight: 97.506 kg

DRUGS (10)
  1. GEODON [Suspect]
     Indication: BIPOLAR DISORDER
     Dosage: 160 MG, 2X/DAY
     Route: 048
  2. LASIX [Concomitant]
     Indication: FLUID RETENTION
     Dosage: UNK
     Dates: start: 20040101
  3. AMARYL [Concomitant]
     Dosage: UNK
     Dates: start: 20040101
  4. BETASERON [Concomitant]
     Indication: MULTIPLE SCLEROSIS
     Dosage: UNK
     Dates: start: 20040101
  5. MAGNESIUM [Concomitant]
     Dosage: UNK
     Dates: start: 20040101
  6. CALCIUM [Concomitant]
     Dosage: UNK
     Dates: start: 20040101
  7. KLONOPIN [Concomitant]
     Indication: ANXIETY
     Dosage: UNK
     Dates: start: 20040101
  8. FENOFIBRATE [Concomitant]
  9. WELCHOL [Concomitant]
  10. ZOCOR [Concomitant]
     Dosage: UNK
     Dates: start: 20090201, end: 20100501

REACTIONS (2)
  - DIABETES MELLITUS [None]
  - HYPERTENSION [None]
